FAERS Safety Report 4819911-8 (Version None)
Quarter: 2005Q4

REPORT INFORMATION
  Report Type: 
  Country: None (occurrence: None)
  Receive Date: 20051102
  Receipt Date: 20051024
  Transmission Date: 20060501
  Serious: Yes (Other)
  Sender: FDA-Public Use
  Company Number: 2005132895

PATIENT
  Age: 46 Year
  Sex: Male
  Weight: 56 kg

DRUGS (2)
  1. LYRICA [Suspect]
     Indication: DIABETIC NEUROPATHY
     Dosage: 150 MG (150 MG, 1 IN 1 D), ORAL
     Route: 048
     Dates: start: 20050911
  2. INSULIN [Concomitant]

REACTIONS (2)
  - CONDITION AGGRAVATED [None]
  - DIABETES MELLITUS INSULIN-DEPENDENT [None]
